FAERS Safety Report 18134539 (Version 3)
Quarter: 2020Q3

REPORT INFORMATION
  Report Type: Spontaneous
  Country: US (occurrence: US)
  Receive Date: 20200811
  Receipt Date: 20200924
  Transmission Date: 20201103
  Serious: No
  Sender: FDA-Public Use
  Company Number: US-PFIZER INC-2020305970

PATIENT
  Age: 3 Decade
  Sex: Male

DRUGS (1)
  1. PHENYTOIN SODIUM. [Suspect]
     Active Substance: PHENYTOIN SODIUM
     Indication: SEIZURE
     Dosage: 500 MG, DAILY(100MG, 2 BY MOUTH IN THE MORNING AND 3 AT NIGHT)
     Route: 048

REACTIONS (1)
  - Drug ineffective [Unknown]
